FAERS Safety Report 26064740 (Version 1)
Quarter: 2025Q4

REPORT INFORMATION
  Report Type: Spontaneous
  Country: BR (occurrence: BR)
  Receive Date: 20251119
  Receipt Date: 20251119
  Transmission Date: 20260118
  Serious: Yes (Hospitalization)
  Sender: NOVO NORDISK
  Company Number: BR-NOVOPROD-1562569

PATIENT
  Age: 56 Year
  Sex: Female

DRUGS (1)
  1. RYBELSUS [Suspect]
     Active Substance: SEMAGLUTIDE
     Indication: Product used for unknown indication
     Dosage: 7 MG (SPLIT THE TABLET)

REACTIONS (5)
  - Erythema [Unknown]
  - Blood pressure decreased [Unknown]
  - Pyrexia [Unknown]
  - Pruritus [Unknown]
  - Wrong technique in product usage process [Unknown]
